FAERS Safety Report 15119346 (Version 1)
Quarter: 2018Q3

REPORT INFORMATION
  Report Type: Other
  Country: CA (occurrence: CA)
  Receive Date: 20180709
  Receipt Date: 20180709
  Transmission Date: 20181010
  Serious: Yes (Other)
  Sender: FDA-Public Use
  Company Number: CA-APOTEX-2018AP016497

PATIENT
  Age: 62 Year
  Sex: Female

DRUGS (5)
  1. SANDOSTATIN [Suspect]
     Active Substance: OCTREOTIDE ACETATE
     Dosage: 20 MG, Q.M.T.
     Route: 065
  2. LIPITOR [Suspect]
     Active Substance: ATORVASTATIN CALCIUM
     Indication: PRODUCT USED FOR UNKNOWN INDICATION
     Dosage: UNK
     Route: 065
  3. SANDOSTATIN [Suspect]
     Active Substance: OCTREOTIDE ACETATE
     Indication: ACROMEGALY
     Dosage: 10 MG, Q.M.T.
     Route: 065
  4. LANREOTIDE ACETATE [Suspect]
     Active Substance: LANREOTIDE ACETATE
     Indication: PRODUCT USED FOR UNKNOWN INDICATION
     Dosage: UNK
     Route: 065
  5. PANTOPRAZOLE [Suspect]
     Active Substance: PANTOPRAZOLE
     Indication: PRODUCT USED FOR UNKNOWN INDICATION
     Dosage: UNK
     Route: 065

REACTIONS (10)
  - Hepatic steatosis [Recovering/Resolving]
  - Weight decreased [Recovering/Resolving]
  - Inappropriate schedule of drug administration [Recovering/Resolving]
  - Hepatic enzyme increased [Recovering/Resolving]
  - Blood pressure increased [Recovering/Resolving]
  - Anaemia [Recovering/Resolving]
  - Blood growth hormone increased [Recovering/Resolving]
  - Thyroid neoplasm [Recovering/Resolving]
  - Arrhythmia [Recovering/Resolving]
  - Spleen disorder [Recovering/Resolving]
